FAERS Safety Report 18443919 (Version 3)
Quarter: 2020Q4

REPORT INFORMATION
  Report Type: Report from Study
  Country: None (occurrence: CO)
  Receive Date: 20201030
  Receipt Date: 20201124
  Transmission Date: 20210114
  Serious: Yes (Hospitalization, Other)
  Sender: FDA-Public Use
  Company Number: CO-ABBVIE-20K-036-3631304-00

PATIENT
  Age: 20 Year
  Sex: Female

DRUGS (2)
  1. ZEMPLAR [Suspect]
     Active Substance: PARICALCITOL
     Indication: CHRONIC KIDNEY DISEASE
  2. ZEMPLAR [Suspect]
     Active Substance: PARICALCITOL
     Indication: HYPERPARATHYROIDISM SECONDARY
     Route: 042
     Dates: start: 20200921, end: 20201016

REACTIONS (5)
  - Pericardial effusion [Recovering/Resolving]
  - Back pain [Unknown]
  - Renal pain [Unknown]
  - Systemic lupus erythematosus [Unknown]
  - Face oedema [Unknown]

NARRATIVE: CASE EVENT DATE: 2020
